FAERS Safety Report 5044381-7 (Version None)
Quarter: 2006Q2

REPORT INFORMATION
  Report Type: 
  Country: None (occurrence: None)
  Receive Date: 20060629
  Receipt Date: 20060621
  Transmission Date: 20061013
  Serious: Yes (Hospitalization)
  Sender: FDA-Public Use
  Company Number: 2006018180

PATIENT
  Age: 61 Year
  Sex: Male
  Weight: 57.4 kg

DRUGS (7)
  1. SU-011, 248  (SUNITINIB MALEATE) [Suspect]
     Indication: GASTROINTESTINAL STROMAL TUMOUR
     Dosage: 50 MG (50 MG, 1 IN 1 D) ORAL
     Route: 048
     Dates: start: 20050826
  2. INSULIN [Concomitant]
  3. DIMETICONE [Concomitant]
  4. AZULENE [Concomitant]
  5. GLUTAMINE (LEVOGLUTAMIDE) [Concomitant]
  6. ALBUMIN ^KABI: (ALBUMIN NORMAL HUMAN SERUM) [Concomitant]
  7. ASPARTATE CALCIUM [Concomitant]

REACTIONS (8)
  - ABDOMINAL PAIN [None]
  - ASPARTATE AMINOTRANSFERASE INCREASED [None]
  - BLOOD ALKALINE PHOSPHATASE INCREASED [None]
  - DISCOMFORT [None]
  - GAMMA-GLUTAMYLTRANSFERASE INCREASED [None]
  - GASTRITIS [None]
  - NEPHROTIC SYNDROME [None]
  - WEIGHT INCREASED [None]
